FAERS Safety Report 7228848-9 (Version None)
Quarter: 2011Q1

REPORT INFORMATION
  Report Type: 
  Country: None (occurrence: None)
  Receive Date: 20110117
  Receipt Date: 20110107
  Transmission Date: 20110831
  Serious: Yes (Hospitalization, Other)
  Sender: FDA-Public Use
  Company Number: CA-ELI_LILLY_AND_COMPANY-CA201003007812

PATIENT
  Sex: Female

DRUGS (6)
  1. VITAMIN D [Concomitant]
     Dosage: 1000 MG, DAILY (1/D)
  2. CALCIUM [Concomitant]
  3. MICARDIS [Concomitant]
  4. CRESTOR /01588602/ [Concomitant]
  5. FORTEO [Suspect]
     Indication: OSTEOPOROSIS
     Dosage: 20 UG, DAILY (1/D)
     Route: 058
     Dates: start: 20100129
  6. VITAMIN D [Concomitant]
     Dosage: 1000 MG, DAILY (1/D)

REACTIONS (4)
  - LABORATORY TEST ABNORMAL [None]
  - HIP FRACTURE [None]
  - BLOOD IRON DECREASED [None]
  - FALL [None]
